FAERS Safety Report 7803080-6 (Version None)
Quarter: 2011Q4

REPORT INFORMATION
  Report Type: 
  Country: None (occurrence: None)
  Receive Date: 20111007
  Receipt Date: 20111003
  Transmission Date: 20120403
  Serious: Yes (Hospitalization)
  Sender: FDA-Public Use
  Company Number: FR-PFIZER INC-2011234760

PATIENT
  Age: 46 Year
  Sex: Female

DRUGS (13)
  1. ZITHROMAX [Suspect]
     Indication: TONSILLITIS
     Dosage: 1 DF, 1X/DAY
     Route: 048
  2. RABEPRAZOLE SODIUM [Concomitant]
  3. MIZOLLEN [Concomitant]
  4. LAMALINE (FRANCE) [Concomitant]
  5. ASCABIOL [Suspect]
     Indication: INFECTION PARASITIC
     Dosage: 2 APPLICATIONS PER DAY
     Route: 003
     Dates: start: 20110815, end: 20110823
  6. SERETIDE [Concomitant]
  7. VALACYCLOVIR HYDROCHLORIDE [Concomitant]
  8. NEURONTIN [Concomitant]
  9. SINGULAIR [Concomitant]
  10. PREDNISONE [Concomitant]
  11. ACETAMINOPHEN [Suspect]
     Indication: PAIN
     Dosage: 1 G, 3X/DAY
     Route: 048
  12. SPEDIFEN [Suspect]
     Indication: ARTHRALGIA
     Dosage: 400 MG, 3X/DAY
     Route: 048
  13. NASONEX [Concomitant]

REACTIONS (1)
  - VASCULITIS [None]
